FAERS Safety Report 7051376-0 (Version None)
Quarter: 2010Q4

REPORT INFORMATION
  Report Type: 
  Country: None (occurrence: None)
  Receive Date: 20101019
  Receipt Date: 20101014
  Transmission Date: 20110411
  Serious: Yes (Hospitalization)
  Sender: FDA-Public Use
  Company Number: US-SHIRE-SPV1-2010-01797

PATIENT
  Sex: Female
  Weight: 54.422 kg

DRUGS (7)
  1. LIALDA [Suspect]
     Indication: COLITIS ULCERATIVE
     Dosage: 1.2 G, 3X/DAY:TID
     Route: 048
     Dates: start: 20090701
  2. LIALDA [Suspect]
     Dosage: 1.2 G, 2X/DAY:BID
     Route: 048
  3. VITAMIN D [Concomitant]
     Indication: SUPPLEMENTATION THERAPY
     Dosage: 1000 MG, 1X/DAY:QD
     Route: 048
  4. ASPIRIN [Concomitant]
     Indication: PRODUCT USED FOR UNKNOWN INDICATION
     Dosage: 81 MG, 1X/DAY:QD
     Route: 048
  5. ONE-A DAY VITAMIN [Concomitant]
     Indication: SUPPLEMENTATION THERAPY
     Dosage: ONE TABLET DAILY
     Route: 048
  6. POTASSIUM [Concomitant]
     Indication: PRODUCT USED FOR UNKNOWN INDICATION
     Dosage: 20 MG, 1X/DAY:QD
     Route: 048
  7. DILTIAZEM [Concomitant]
     Indication: HYPERTENSION
     Dosage: 120 MG, 1X/DAY:QD
     Route: 048

REACTIONS (5)
  - ANAEMIA [None]
  - FLUID RETENTION [None]
  - FLUSHING [None]
  - FREQUENT BOWEL MOVEMENTS [None]
  - INAPPROPRIATE SCHEDULE OF DRUG ADMINISTRATION [None]
